FAERS Safety Report 5390671-8 (Version None)
Quarter: 2007Q3

REPORT INFORMATION
  Report Type: 
  Country: None (occurrence: None)
  Receive Date: 20070712
  Receipt Date: 20070417
  Transmission Date: 20080115
  Serious: Yes (Other)
  Sender: FDA-Public Use
  Company Number: 6033498

PATIENT
  Age: 26 Year
  Sex: Female

DRUGS (5)
  1. FLUCONAZOLE [Suspect]
     Indication: CANDIDIASIS
     Dosage: (150 UNKNOWN) ORAL
     Route: 048
     Dates: start: 20070212, end: 20070226
  2. CANESTEN-HC                  (HYDROCORTISONE, CLOTRIMAZOLE) [Concomitant]
  3. CLOTRIMAZOLE [Concomitant]
  4. METRONIDAZOLE [Concomitant]
  5. VALACYCLOVIR [Concomitant]

REACTIONS (2)
  - ERYTHEMA [None]
  - ORAL MUCOSAL BLISTERING [None]
